FAERS Safety Report 18490876 (Version 1)
Quarter: 2020Q4

REPORT INFORMATION
  Report Type: Spontaneous
  Country: JP (occurrence: JP)
  Receive Date: 20201111
  Receipt Date: 20201111
  Transmission Date: 20210114
  Serious: Yes (Death, Other)
  Sender: FDA-Public Use
  Company Number: JP-JAZZ-2020-JP-014641

PATIENT
  Age: 47 Year
  Sex: Male

DRUGS (1)
  1. DEFITELIO [Suspect]
     Active Substance: DEFIBROTIDE SODIUM
     Indication: PRODUCT USED FOR UNKNOWN INDICATION
     Dosage: 1600 MILLIGRAM, QD
     Route: 042
     Dates: start: 20201103, end: 20201105

REACTIONS (1)
  - Death [Fatal]

NARRATIVE: CASE EVENT DATE: 202011
